FAERS Safety Report 7378114-6 (Version None)
Quarter: 2011Q1

REPORT INFORMATION
  Report Type: 
  Country: None (occurrence: None)
  Receive Date: 20110317
  Receipt Date: 20110308
  Transmission Date: 20110831
  Serious: Yes (Hospitalization, Other)
  Sender: FDA-Public Use
  Company Number: 837785

PATIENT
  Age: 80 Year
  Sex: Male
  Weight: 89.7 kg

DRUGS (6)
  1. METHOTREXATE INJECTION (METHOTREXATE) [Suspect]
     Indication: CENTRAL NERVOUS SYSTEM LYMPHOMA
     Dosage: X 1, INTRAVENOUS
     Route: 042
     Dates: start: 20110219, end: 20110219
  2. ONDANSETRON [Concomitant]
  3. (DEXAMETHASONE) [Concomitant]
  4. METHOTREXATE INJECTION (METHOTREXATE) [Suspect]
     Indication: CENTRAL NERVOUS SYSTEM LYMPHOMA
     Dosage: X 1, INTRAVNEOUS
     Route: 042
     Dates: start: 20110219, end: 20110219
  5. (RITUXAN) [Concomitant]
  6. (EMEND /01627301/) [Concomitant]

REACTIONS (4)
  - CREATININE RENAL CLEARANCE DECREASED [None]
  - HYPOPHOSPHATAEMIA [None]
  - URINE OUTPUT DECREASED [None]
  - HYPOCALCAEMIA [None]
